FAERS Safety Report 12810085 (Version 2)
Quarter: 2017Q1

REPORT INFORMATION
  Report Type: Spontaneous
  Country: US (occurrence: US)
  Receive Date: 20161005
  Receipt Date: 20170130
  Transmission Date: 20170428
  Serious: No
  Sender: FDA-Public Use
  Company Number: US-PFIZER INC-2016462797

PATIENT
  Age: 64 Year
  Sex: Female

DRUGS (1)
  1. XELJANZ [Suspect]
     Active Substance: TOFACITINIB CITRATE
     Dosage: 5 MG, 1X/DAY
     Dates: start: 201410

REACTIONS (5)
  - Candida infection [Unknown]
  - White blood cell count decreased [Unknown]
  - Weight decreased [Unknown]
  - Bronchitis [Unknown]
  - Laryngitis [Unknown]
